FAERS Safety Report 7257499-5 (Version None)
Quarter: 2011Q1

REPORT INFORMATION
  Report Type: 
  Country: None (occurrence: None)
  Receive Date: 20110129
  Receipt Date: 20100521
  Transmission Date: 20110831
  Serious: Yes (Hospitalization)
  Sender: FDA-Public Use
  Company Number: US-ABBOTT-10P-163-0643957-00

PATIENT
  Sex: Male
  Weight: 74.91 kg

DRUGS (4)
  1. HUMIRA [Suspect]
     Indication: CROHN'S DISEASE
  2. OXYCONTIN [Concomitant]
     Indication: BACK PAIN
  3. TYLENOL W/ CODEINE NO. 3 [Concomitant]
     Indication: BACK PAIN
  4. HUMIRA [Suspect]
     Indication: CROHN'S DISEASE
     Dates: start: 20080101

REACTIONS (2)
  - CROHN'S DISEASE [None]
  - BACK PAIN [None]
